FAERS Safety Report 4669815-9 (Version None)
Quarter: 2005Q2

REPORT INFORMATION
  Report Type: 
  Country: None (occurrence: None)
  Receive Date: 20050520
  Receipt Date: 20050510
  Transmission Date: 20051028
  Serious: Yes (Other)
  Sender: FDA-Public Use
  Company Number: 2005064200

PATIENT
  Age: 62 Year
  Sex: Female
  Weight: 69.4003 kg

DRUGS (11)
  1. BEXTRA [Suspect]
     Indication: BURSITIS
     Dosage: 20 MG (20 MG, 1 IN 1 D), ORAL
     Route: 048
     Dates: start: 20040101, end: 20050401
  2. ZANTAC [Concomitant]
  3. BACLOFEN [Concomitant]
  4. BUSPAR [Concomitant]
  5. ALL OTHER THERAPEUTIC PRODUCTS (ALL OTHER THERAPEUTIC PRODUCTS) [Concomitant]
  6. LIDODERM (LIDOCAINE) [Concomitant]
  7. LAMICTAL [Concomitant]
  8. NASOCORT (BUDESONIDE) [Concomitant]
  9. MIACALCIN [Concomitant]
  10. RHINOCORT [Concomitant]
  11. NASAL SALINE (SODIUM CHLORIDE) [Concomitant]

REACTIONS (3)
  - BEDRIDDEN [None]
  - PRURITUS [None]
  - RASH MACULAR [None]
